FAERS Safety Report 4306771-7 (Version None)
Quarter: 2004Q1

REPORT INFORMATION
  Report Type: 
  Country: None (occurrence: None)
  Receive Date: 20040225
  Receipt Date: 20040205
  Transmission Date: 20041129
  Serious: Yes (Other)
  Sender: FDA-Public Use
  Company Number: US_0402100626

PATIENT
  Age: 70 Year
  Sex: Female
  Weight: 82 kg

DRUGS (17)
  1. FORTEO [Suspect]
     Indication: COMPRESSION FRACTURE
     Dosage: 20 UG/DAY
     Dates: start: 20030923
  2. FORTEO [Suspect]
     Indication: OSTEOPOROSIS
     Dosage: 20 UG/DAY
     Dates: start: 20030923
  3. ACTONEL [Concomitant]
  4. BUMEX [Concomitant]
  5. KLONOPIN [Concomitant]
  6. FLEXERIL [Concomitant]
  7. TOFRANIL [Concomitant]
  8. K-DUR 10 [Concomitant]
  9. KRISTALOSE (LACTULOSE) [Concomitant]
  10. MEDROL [Concomitant]
  11. PLAQUENIL [Concomitant]
  12. PREMARIN [Concomitant]
  13. PREVACID [Concomitant]
  14. ULTRAM [Concomitant]
  15. ZAROXOLYN [Concomitant]
  16. VITAMIN B-12 [Concomitant]
  17. LEXAPRO [Concomitant]

REACTIONS (4)
  - DIZZINESS [None]
  - FALL [None]
  - GAIT DISTURBANCE [None]
  - WALKING AID USER [None]
